FAERS Safety Report 26177684 (Version 1)
Quarter: 2025Q4

REPORT INFORMATION
  Report Type: Spontaneous
  Country: US (occurrence: US)
  Receive Date: 20251219
  Receipt Date: 20251219
  Transmission Date: 20260118
  Serious: No
  Sender: SUPERNUS PHARMACEUTICALS, INC
  Company Number: US-002147023-SUP202506-002051

PATIENT
  Weight: 45 kg

DRUGS (1)
  1. OXTELLAR XR [Suspect]
     Active Substance: OXCARBAZEPINE
     Indication: Seizure
     Dosage: 1200 MG

REACTIONS (1)
  - Drug ineffective [Unknown]
